FAERS Safety Report 21521738 (Version 1)
Quarter: 2022Q4

REPORT INFORMATION
  Report Type: Spontaneous
  Country: TR (occurrence: TR)
  Receive Date: 20221028
  Receipt Date: 20221028
  Transmission Date: 20230112
  Serious: Yes (Death, Hospitalization, Other)
  Sender: FDA-Public Use
  Company Number: TR-BAYER-2022P018645

PATIENT
  Age: 54 Year
  Sex: Female

DRUGS (1)
  1. STIVARGA [Suspect]
     Active Substance: REGORAFENIB
     Indication: Colorectal cancer metastatic
     Dosage: 80 MG, QD
     Route: 048

REACTIONS (7)
  - Death [Fatal]
  - Jaundice [None]
  - Ascites [None]
  - Hepatitis [None]
  - Fatigue [None]
  - Stomatitis [None]
  - Off label use [None]

NARRATIVE: CASE EVENT DATE: 20190608
